FAERS Safety Report 4658053-1 (Version None)
Quarter: 2005Q2

REPORT INFORMATION
  Report Type: 
  Country: None (occurrence: None)
  Receive Date: 20050510
  Receipt Date: 20050427
  Transmission Date: 20051028
  Serious: Yes (Disabling)
  Sender: FDA-Public Use
  Company Number: CA-MERCK-0505CAN00038

PATIENT
  Sex: Male

DRUGS (1)
  1. VIOXX [Suspect]
     Route: 048
     Dates: start: 20031201, end: 20040621

REACTIONS (2)
  - CARDIAC DISORDER [None]
  - CHEST PAIN [None]
